FAERS Safety Report 8806413 (Version 2)
Quarter: 2013Q1

REPORT INFORMATION
  Report Type: Spontaneous
  Country: US (occurrence: US)
  Receive Date: 20120925
  Receipt Date: 20130110
  Transmission Date: 20140127
  Serious: No
  Sender: FDA-Public Use
  Company Number: US-PFIZER INC-2012234068

PATIENT
  Age: 51 Year
  Sex: Female
  Weight: 65.31 kg

DRUGS (5)
  1. LYRICA [Suspect]
     Indication: DIABETIC NEUROPATHY
     Dosage: 50 MG, 2X/DAY
     Route: 048
     Dates: start: 2012, end: 2012
  2. LYRICA [Suspect]
     Dosage: 25 MG ONCE IN THE DAY AND 50MG ONCE AT NIGHT
     Route: 048
     Dates: start: 2012, end: 2012
  3. LYRICA [Suspect]
     Dosage: 75 MG, 2X/DAY
     Route: 048
     Dates: start: 2012, end: 20120917
  4. CELEXA [Concomitant]
     Indication: DEPRESSION
     Dosage: 30 MG, 1X/DAY
  5. NEURONTIN [Concomitant]
     Dosage: UNK

REACTIONS (5)
  - Euphoric mood [Recovered/Resolved]
  - Somnolence [Recovered/Resolved]
  - Dizziness [Recovered/Resolved]
  - Drug effect incomplete [Unknown]
  - Pain [Not Recovered/Not Resolved]
